FAERS Safety Report 5013639-X (Version None)
Quarter: 2006Q2

REPORT INFORMATION
  Report Type: 
  Country: None (occurrence: None)
  Receive Date: 20060530
  Receipt Date: 20060517
  Transmission Date: 20061013
  Serious: Yes (Hospitalization)
  Sender: FDA-Public Use
  Company Number: FR-GLAXOSMITHKLINE-B0424198A

PATIENT
  Age: 46 Year
  Sex: Female

DRUGS (4)
  1. DEROXAT [Suspect]
     Dosage: 20MG PER DAY
     Route: 048
  2. IMOVANE [Concomitant]
     Dosage: 1TAB PER DAY
     Route: 048
  3. XANAX [Concomitant]
     Dosage: 5MG TWICE PER DAY
     Route: 048
  4. ASPIRIN [Concomitant]
     Dosage: 325MG PER DAY
     Route: 065

REACTIONS (4)
  - AMNESIA [None]
  - EPILEPSY [None]
  - GRAND MAL CONVULSION [None]
  - POSTICTAL STATE [None]
